FAERS Safety Report 8469359-2 (Version None)
Quarter: 2012Q2

REPORT INFORMATION
  Report Type: 
  Country: None (occurrence: None)
  Receive Date: 20120621
  Receipt Date: 20120621
  Transmission Date: 20120825
  Serious: Yes (Other)
  Sender: FDA-Public Use
  Company Number: None

PATIENT
  Age: 9 Year
  Sex: Male
  Weight: 31.7518 kg

DRUGS (4)
  1. RISPERIDONE [Suspect]
     Indication: ATTENTION DEFICIT/HYPERACTIVITY DISORDER
     Dosage: RISPERIDONE BID ORAL HELD ON 5/29/12
     Route: 048
  2. RISPERIDONE [Suspect]
     Indication: ASPERGER'S DISORDER
     Dosage: RISPERIDONE BID ORAL HELD ON 5/29/12
     Route: 048
  3. CONCERTA [Concomitant]
  4. PEPCID [Suspect]
     Dosage: PEPCID BID ORAL
     Route: 048
     Dates: start: 20120526, end: 20120606

REACTIONS (2)
  - INSOMNIA [None]
  - SLEEP DISORDER [None]
